FAERS Safety Report 7824303-3 (Version None)
Quarter: 2011Q4

REPORT INFORMATION
  Report Type: 
  Country: None (occurrence: None)
  Receive Date: 20111019
  Receipt Date: 20111005
  Transmission Date: 20120403
  Serious: Yes (Other)
  Sender: FDA-Public Use
  Company Number: GB-BAYER-2011-098427

PATIENT
  Sex: Female

DRUGS (2)
  1. CLOTRIMAZOLE [Suspect]
  2. CLOTRIMAZOLE [Suspect]
     Dosage: UNK
     Dates: start: 20110901

REACTIONS (2)
  - VULVOVAGINAL ERYTHEMA [None]
  - VAGINAL HAEMORRHAGE [None]
